FAERS Safety Report 9748476 (Version 1)
Quarter: 2013Q4

REPORT INFORMATION
  Report Type: Spontaneous
  Country: US (occurrence: US)
  Receive Date: 20131212
  Receipt Date: 20131212
  Transmission Date: 20140711
  Serious: No
  Sender: FDA-Public Use
  Company Number: US-BAYER-2013-151801

PATIENT
  Age: 70 Year
  Sex: Male
  Weight: 78 kg

DRUGS (12)
  1. ALEVE CAPLET [Suspect]
     Indication: BACK PAIN
     Dosage: 1 DF, PRN
     Route: 048
     Dates: start: 2013
  2. COLACE [Concomitant]
  3. GLYCOLAX [Concomitant]
  4. BUMEX [Concomitant]
  5. GLIPIZIDE [Concomitant]
  6. ZOCOR [Concomitant]
  7. PRILOSEC [Concomitant]
  8. LISINOPRIL [Concomitant]
  9. ASPIRIN [Concomitant]
  10. PLAVIX [Concomitant]
  11. NEURONTIN [Concomitant]
  12. NITROGLYCERIN [Concomitant]

REACTIONS (1)
  - Abdominal pain upper [Not Recovered/Not Resolved]
